FAERS Safety Report 19443536 (Version 1)
Quarter: 2021Q2

REPORT INFORMATION
  Report Type: Spontaneous
  Country: DE (occurrence: DE)
  Receive Date: 20210621
  Receipt Date: 20210621
  Transmission Date: 20210717
  Serious: Yes (Other)
  Sender: FDA-Public Use
  Company Number: NVSC2021DE134421

PATIENT
  Age: 71 Year
  Sex: Female
  Weight: 70 kg

DRUGS (1)
  1. AMOXI ? 1 A PHARMA [Suspect]
     Active Substance: AMOXICILLIN
     Indication: GINGIVITIS
     Dosage: 3000 MG, QD (3 X TAGLICH)
     Route: 048
     Dates: start: 20210521

REACTIONS (4)
  - Palpitations [Recovered/Resolved]
  - Angina pectoris [Recovered/Resolved]
  - Fatigue [Recovered/Resolved]
  - Anxiety [Recovered/Resolved]

NARRATIVE: CASE EVENT DATE: 20210521
